FAERS Safety Report 23320242 (Version 1)
Quarter: 2023Q4

REPORT INFORMATION
  Report Type: Spontaneous
  Country: AU (occurrence: None)
  Receive Date: 20231220
  Receipt Date: 20231220
  Transmission Date: 20240110
  Serious: Yes (Other)
  Sender: FDA-Public Use
  Company Number: AU-ADIENNEP-2023AD000999

PATIENT
  Age: 65 Year
  Sex: Male

DRUGS (9)
  1. THIOTEPA [Suspect]
     Active Substance: THIOTEPA
     Indication: Lymphoma
     Dosage: ()
     Dates: start: 2023
  2. CYCLOPHOSPHAMIDE [Suspect]
     Active Substance: CYCLOPHOSPHAMIDE
     Indication: Lymphoma
     Dosage: ()
     Dates: start: 2021
  3. DOXORUBICIN HYDROCHLORIDE [Suspect]
     Active Substance: DOXORUBICIN HYDROCHLORIDE
     Indication: Lymphoma
     Dosage: ()
     Dates: start: 2021
  4. CYTARABINE [Suspect]
     Active Substance: CYTARABINE
     Indication: Lymphoma
     Dosage: ()
     Dates: start: 2023
  5. METHOTREXATE [Suspect]
     Active Substance: METHOTREXATE
     Indication: Lymphoma
     Dosage: ()
     Dates: start: 2023
  6. PREDNISOLONE [Suspect]
     Active Substance: PREDNISOLONE
     Indication: Lymphoma
     Dosage: ()
     Dates: start: 2021
  7. RITUXIMAB [Suspect]
     Active Substance: RITUXIMAB
     Indication: Lymphoma
     Dosage: ()
     Dates: start: 2021
  8. RITUXIMAB [Suspect]
     Active Substance: RITUXIMAB
     Indication: Lymphoma
     Dosage: ()
     Dates: start: 2023
  9. VINCRISTINE [Suspect]
     Active Substance: VINCRISTINE
     Indication: Lymphoma
     Dosage: ()
     Dates: start: 2021

REACTIONS (5)
  - Central nervous system lymphoma [Unknown]
  - Disease progression [Unknown]
  - Disease recurrence [Unknown]
  - Lymphoma [Unknown]
  - Refractory cancer [Unknown]

NARRATIVE: CASE EVENT DATE: 20230101
